FAERS Safety Report 16367103 (Version 9)
Quarter: 2021Q1

REPORT INFORMATION
  Report Type: Report from Study
  Country: US (occurrence: US)
  Receive Date: 20190529
  Receipt Date: 20210302
  Transmission Date: 20210419
  Serious: Yes (Other)
  Sender: FDA-Public Use
  Company Number: US-SA-2019SA141858

PATIENT
  Age: 64 Year
  Sex: Female

DRUGS (14)
  1. DUPILUMAB [Suspect]
     Active Substance: DUPILUMAB
     Dosage: UNK
     Dates: start: 202002
  2. ASPIRIN [ACETYLSALICYLIC ACID] [Concomitant]
     Active Substance: ASPIRIN
  3. AMLODIPINE [Concomitant]
     Active Substance: AMLODIPINE BESYLATE
     Dosage: 2.5 MG, QD
     Route: 048
     Dates: start: 2005
  4. CYANOCOBALAMIN. [Concomitant]
     Active Substance: CYANOCOBALAMIN
     Indication: PERNICIOUS ANAEMIA
     Dosage: 1 ML, QM
     Dates: start: 2000
  5. FLUOCINONIDE. [Concomitant]
     Active Substance: FLUOCINONIDE
     Indication: ECZEMA
     Dosage: .05 %
     Route: 061
     Dates: start: 2017
  6. CALCIUM [Concomitant]
     Active Substance: CALCIUM
  7. DUPILUMAB [Suspect]
     Active Substance: DUPILUMAB
     Indication: ECZEMA
     Dosage: UNK UNK, 1X
     Dates: start: 201812, end: 201812
  8. ESTRING [Concomitant]
     Active Substance: ESTRADIOL
     Indication: POSTMENOPAUSE
     Dosage: 2 MG, Q3M
     Route: 067
     Dates: start: 2010
  9. DUPILUMAB [Suspect]
     Active Substance: DUPILUMAB
     Indication: DERMATITIS ATOPIC
     Dosage: UNK
     Dates: start: 2017
  10. DUPILUMAB [Suspect]
     Active Substance: DUPILUMAB
     Dosage: 300 MG, QOW
     Route: 058
     Dates: start: 20190219, end: 20190520
  11. VITAMIN C [Concomitant]
     Active Substance: ASCORBIC ACID
  12. VITAMIN D [VITAMIN D NOS] [Concomitant]
     Active Substance: VITAMIN D NOS
  13. LEVOTHYROXINE. [Concomitant]
     Active Substance: LEVOTHYROXINE
     Indication: HYPOTHYROIDISM
     Dosage: 112 UG, QD
     Route: 048
     Dates: start: 1975
  14. SIMVASTATIN. [Concomitant]
     Active Substance: SIMVASTATIN
     Dosage: 10 MG, QD
     Route: 048
     Dates: start: 2005

REACTIONS (14)
  - Chronic lymphocytic leukaemia [Unknown]
  - Vomiting [Unknown]
  - Lymphadenopathy [Unknown]
  - Gastritis erosive [Unknown]
  - Pruritus [Unknown]
  - Dry skin [Unknown]
  - Immune system disorder [Unknown]
  - Decreased appetite [Unknown]
  - Gastric disorder [Unknown]
  - Abdominal pain upper [Recovered/Resolved]
  - Abdominal distension [Unknown]
  - Back pain [Unknown]
  - Chest pain [Recovered/Resolved]
  - Eczema [Unknown]

NARRATIVE: CASE EVENT DATE: 201807
